FAERS Safety Report 9448120 (Version 1)
Quarter: 2013Q3

REPORT INFORMATION
  Report Type: Spontaneous
  Country: CA (occurrence: None)
  Receive Date: 20130806
  Receipt Date: 20130806
  Transmission Date: 20140515
  Serious: Yes (Hospitalization)
  Sender: FDA-Public Use
  Company Number: 2013AL000461

PATIENT
  Age: 68 Year
  Sex: Female

DRUGS (20)
  1. MACROBID [Suspect]
     Indication: PRODUCT USED FOR UNKNOWN INDICATION
     Route: 048
  2. CITALOPRAM [Concomitant]
  3. HALOPERIDOL [Concomitant]
  4. LORAZEPAM [Concomitant]
  5. HYPROMELLOSE [Concomitant]
  6. CLOPIDOGREL [Concomitant]
  7. ENTROPHEN [Concomitant]
  8. TRAZODONE [Suspect]
  9. ACETAMINOPHEN [Concomitant]
  10. SALBUTAMOL [Concomitant]
  11. SPIRONOLACTONE [Concomitant]
  12. RABEPRAZOLE [Concomitant]
  13. OLANZAPINE [Concomitant]
  14. GLYCERYL TRINITRATE [Concomitant]
  15. METOPROLOL [Concomitant]
  16. METFORMIN [Concomitant]
  17. NOVOLIN [Concomitant]
  18. NOVOLIN [Concomitant]
  19. FUROSEMIDE [Concomitant]
  20. DOMPERIDONE [Concomitant]

REACTIONS (2)
  - Renal failure acute [None]
  - Hepatitis acute [None]
